FAERS Safety Report 6621507-2 (Version None)
Quarter: 2010Q1

REPORT INFORMATION
  Report Type: 
  Country: None (occurrence: None)
  Receive Date: 20100223
  Receipt Date: 20091029
  Transmission Date: 20100710
  Serious: No
  Sender: FDA-Public Use
  Company Number: 8052787

PATIENT
  Sex: Female
  Weight: 77.1 kg

DRUGS (1)
  1. CIMZIA [Suspect]
     Indication: CROHN'S DISEASE
     Dosage: SUBCUTANEOUS
     Route: 058
     Dates: start: 20081125

REACTIONS (4)
  - FREQUENT BOWEL MOVEMENTS [None]
  - NAUSEA [None]
  - PREGNANCY [None]
  - VOMITING [None]
